FAERS Safety Report 20348972 (Version 1)
Quarter: 2022Q1

REPORT INFORMATION
  Report Type: Spontaneous
  Country: US (occurrence: US)
  Receive Date: 20220119
  Receipt Date: 20220119
  Transmission Date: 20220423
  Serious: No
  Sender: FDA-Public Use
  Company Number: US-BRISTOL-MYERS SQUIBB COMPANY-BMS-2022-007151

PATIENT
  Age: 71 Year
  Sex: Female

DRUGS (2)
  1. OPDIVO [Suspect]
     Active Substance: NIVOLUMAB
     Indication: Neuroendocrine carcinoma of the skin
     Dosage: 214 MILLIGRAM, Q3WK
     Route: 042
     Dates: end: 202111
  2. YERVOY [Suspect]
     Active Substance: IPILIMUMAB
     Indication: Neuroendocrine carcinoma of the skin
     Dosage: 71 MILLIGRAM, Q3WK
     Route: 042
     Dates: end: 202111

REACTIONS (1)
  - Intentional product use issue [Unknown]
